FAERS Safety Report 5832997-7 (Version None)
Quarter: 2008Q3

REPORT INFORMATION
  Report Type: 
  Country: None (occurrence: None)
  Receive Date: 20080804
  Receipt Date: 20080730
  Transmission Date: 20090109
  Serious: Yes (Other)
  Sender: FDA-Public Use
  Company Number: TW-ABBOTT-08P-153-0467252-00

PATIENT
  Age: 28 Year
  Sex: Female
  Weight: 41 kg

DRUGS (3)
  1. REDUCTIL 15MG [Suspect]
     Indication: DRUG USE FOR UNKNOWN INDICATION
     Dosage: ON AN OFF
     Route: 048
     Dates: start: 20080601, end: 20080726
  2. PARACETAMOL [Concomitant]
     Indication: ABDOMINAL DISCOMFORT
     Dates: start: 20080701
  3. PARACETAMOL [Concomitant]
     Indication: HEADACHE

REACTIONS (3)
  - ABDOMINAL DISCOMFORT [None]
  - HEADACHE [None]
  - INTRA-UTERINE DEATH [None]
